FAERS Safety Report 10190194 (Version 2)
Quarter: 2014Q2

REPORT INFORMATION
  Report Type: Report from Study
  Country: US (occurrence: US)
  Receive Date: 20140522
  Receipt Date: 20140602
  Transmission Date: 20141212
  Serious: Yes (Hospitalization)
  Sender: FDA-Public Use
  Company Number: GXBR2014US001292

PATIENT
  Age: 55 Year
  Sex: Female

DRUGS (4)
  1. ENOXAPARIN SODIUM [Suspect]
     Indication: THROMBOSIS
     Dosage: 40 MG, QD
     Route: 058
     Dates: start: 201304
  2. ENOXAPARIN SODIUM [Suspect]
     Indication: VENA CAVA FILTER INSERTION
  3. BACLOFEN [Concomitant]
     Dosage: UNK DF, UNK
  4. POTASSIUM [Concomitant]
     Dosage: UNK DF, UNK

REACTIONS (5)
  - Diabetes mellitus [Recovering/Resolving]
  - Pneumonia [Recovering/Resolving]
  - Incoherent [Recovering/Resolving]
  - Malaise [Not Recovered/Not Resolved]
  - Diarrhoea [Not Recovered/Not Resolved]
